FAERS Safety Report 4523512-9 (Version None)
Quarter: 2004Q4

REPORT INFORMATION
  Report Type: 
  Country: None (occurrence: None)
  Receive Date: 20041117
  Receipt Date: 20040728
  Transmission Date: 20050328
  Serious: Yes (Hospitalization)
  Sender: FDA-Public Use
  Company Number: DE-JNJFOC-20040707606

PATIENT
  Age: 84 Year
  Sex: Male

DRUGS (18)
  1. LEVOFLOXACIN [Suspect]
     Indication: PNEUMONIA
     Dosage: INTRAVENOUS
     Route: 042
     Dates: start: 20040215, end: 20040216
  2. LEVOFLOXACIN [Suspect]
     Indication: PNEUMONIA
     Dosage: ORAL
     Route: 048
     Dates: start: 20040217, end: 20040224
  3. SOLU-MEDROL [Concomitant]
  4. PROVENTIL [Concomitant]
  5. MEDROLE (METHYLPREDNISOLONE) [Concomitant]
  6. MILK OF MAGNESIA (MAGNESIUM HYDROXIDE) [Concomitant]
  7. NORVASC [Concomitant]
  8. LOVENOX [Concomitant]
  9. AMBIEN [Concomitant]
  10. TYLENOL [Concomitant]
  11. ATROVENT [Concomitant]
  12. PEPCID [Concomitant]
  13. INSULIN [Concomitant]
  14. ADVAIR (SERETIDE MITE) [Concomitant]
  15. XOPENEX [Concomitant]
  16. KCL (POTASSIUM CHLORIDE) [Concomitant]
  17. DILAUDID [Concomitant]
  18. ATIVAN [Concomitant]

REACTIONS (2)
  - ARTERIOVENOUS MALFORMATION [None]
  - UPPER GASTROINTESTINAL HAEMORRHAGE [None]
